FAERS Safety Report 11633809 (Version 4)
Quarter: 2016Q3

REPORT INFORMATION
  Report Type: Report from Study
  Country: GB (occurrence: GB)
  Receive Date: 20151015
  Receipt Date: 20160803
  Transmission Date: 20161109
  Serious: Yes (Hospitalization)
  Sender: FDA-Public Use
  Company Number: GB-ASTRAZENECA-2015SE97941

PATIENT
  Age: 68 Year
  Sex: Male

DRUGS (10)
  1. CANDESARTAN [Concomitant]
     Active Substance: CANDESARTAN
     Route: 048
  2. ASPIRIN. [Suspect]
     Active Substance: ASPIRIN
     Indication: ACUTE CORONARY SYNDROME
     Dosage: MAINTENANCE DOSE- 75 MG (NON AZ PRODUCT)
     Route: 048
     Dates: end: 20140522
  3. PRASGUREL [Concomitant]
     Route: 048
  4. MESALAZINE [Concomitant]
     Active Substance: MESALAMINE
     Route: 048
  5. ATORVASTATIN [Concomitant]
     Active Substance: ATORVASTATIN
     Route: 048
  6. TICAGRELOR [Suspect]
     Active Substance: TICAGRELOR
     Indication: ACUTE CORONARY SYNDROME
     Route: 048
     Dates: start: 20140422, end: 20150524
  7. OMEPRAZOLE. [Concomitant]
     Active Substance: OMEPRAZOLE
     Route: 048
  8. STUDY PROCEDURE [Suspect]
     Active Substance: INVESTIGATIONAL PRODUCT
     Indication: ACUTE CORONARY SYNDROME
     Route: 065
  9. AMLODIPINE [Concomitant]
     Active Substance: AMLODIPINE BESYLATE
     Route: 048
  10. BISOPROLOL [Concomitant]
     Active Substance: BISOPROLOL
     Route: 048

REACTIONS (1)
  - Atrioventricular block second degree [Recovered/Resolved with Sequelae]

NARRATIVE: CASE EVENT DATE: 20150620
